FAERS Safety Report 8956804 (Version 2)
Quarter: 2013Q1

REPORT INFORMATION
  Report Type: Report from Study
  Country: JP (occurrence: JP)
  Receive Date: 20121211
  Receipt Date: 20130307
  Transmission Date: 20140127
  Serious: Yes (Other)
  Sender: FDA-Public Use
  Company Number: JP-009507513-1212JPN002394

PATIENT
  Age: 44 Year
  Sex: Male
  Weight: 63 kg

DRUGS (20)
  1. PEGINTRON [Suspect]
     Indication: CHRONIC HEPATITIS C
     Dosage: 1.5 MICROGRAM PER KILOGRAM, QW
     Route: 058
     Dates: start: 20120810, end: 20130107
  2. REBETOL [Suspect]
     Indication: CHRONIC HEPATITIS C
     Dosage: 800 MG, QD
     Route: 048
     Dates: start: 20120810, end: 20121010
  3. REBETOL [Suspect]
     Dosage: 600 MG, QD
     Route: 048
     Dates: start: 20121011, end: 20121017
  4. REBETOL [Suspect]
     Dosage: 200 MG, QD
     Route: 048
     Dates: start: 20121018, end: 20130103
  5. REBETOL [Suspect]
     Dosage: 400 MG, QD
     Route: 048
     Dates: start: 20130104, end: 20130107
  6. TELAVIC [Suspect]
     Indication: CHRONIC HEPATITIS C
     Dosage: 1000 MG, QD
     Route: 048
     Dates: start: 20120810, end: 20121101
  7. TRUVADA [Concomitant]
     Indication: HIV INFECTION
     Dosage: 1 DF, QD
     Route: 048
  8. ISENTRESS TABLETS 400MG [Concomitant]
     Indication: HIV INFECTION
     Dosage: 800 MG, QD
     Route: 048
  9. PARIET [Concomitant]
     Indication: GASTRITIS
     Dosage: 10 MG, QD
     Route: 048
  10. PARIET [Concomitant]
     Indication: GASTROOESOPHAGEAL REFLUX DISEASE
  11. LIVALO [Concomitant]
     Indication: HYPERLIPIDAEMIA
     Dosage: 2 MG, QD, FORMULATION:POR
     Route: 048
  12. EPADEL [Concomitant]
     Indication: HYPERLIPIDAEMIA
     Dosage: 1800 MG, QD,FORMULATION :POR
     Route: 048
  13. FEROTYM [Concomitant]
     Indication: IRON DEFICIENCY ANAEMIA
     Dosage: 100 MG, QD,FORMULATION:POR
     Route: 048
  14. CLARITIN REDITABS TABLETS 10 MG [Concomitant]
     Indication: PROPHYLAXIS
     Dosage: 10 MG, QD,FORMULATION:POR
     Route: 048
  15. RIVOTRIL [Concomitant]
     Indication: INSOMNIA
     Dosage: 1.5 MG, QD,FORMULATION:POR
     Route: 048
  16. PROTHIADEN [Concomitant]
     Indication: INSOMNIA
     Dosage: 75 MG, QD,FORMULATION:POR
     Route: 048
  17. DOGMATYL [Concomitant]
     Indication: INSOMNIA
     Dosage: 100 MG, QD,FORMULATION:POR
     Route: 048
  18. JZOLOFT [Concomitant]
     Indication: INSOMNIA
     Dosage: 50 MG, QD,FORMULATION:POR
     Route: 048
  19. SEFTAC [Concomitant]
     Indication: GASTRITIS
     Dosage: 150 MG, QD,FORMULATION:POR
     Route: 048
  20. SEFTAC [Concomitant]
     Indication: GASTROOESOPHAGEAL REFLUX DISEASE

REACTIONS (2)
  - Anaemia [Not Recovered/Not Resolved]
  - Anaemia [Not Recovered/Not Resolved]
